FAERS Safety Report 24918460 (Version 1)
Quarter: 2025Q1

REPORT INFORMATION
  Report Type: Spontaneous
  Country: US (occurrence: None)
  Receive Date: 20240927
  Receipt Date: 20240927
  Transmission Date: 20250409
  Serious: Yes (Death, Hospitalization)
  Sender: DANCO
  Company Number: None

PATIENT
  Age: 28 Year
  Sex: Female

DRUGS (2)
  1. MIFEPRISTONE [Suspect]
     Active Substance: MIFEPRISTONE
     Indication: Abortion induced
     Route: 048
     Dates: start: 20220813
  2. MISOPROSTOL [Suspect]
     Active Substance: MISOPROSTOL
     Route: 002
     Dates: start: 20220814

REACTIONS (6)
  - Septic shock [None]
  - Death [None]
  - Hypotension [None]
  - Vomiting [None]
  - Syncope [None]
  - Abortion incomplete [None]

NARRATIVE: CASE EVENT DATE: 20220819
